FAERS Safety Report 21228499 (Version 1)
Quarter: 2022Q3

REPORT INFORMATION
  Report Type: Report from Study
  Country: TW (occurrence: TW)
  Receive Date: 20220818
  Receipt Date: 20220818
  Transmission Date: 20221027
  Serious: Yes (Death, Other)
  Sender: FDA-Public Use
  Company Number: TW-BAYER-2022A113863

PATIENT
  Age: 89 Year
  Sex: Female

DRUGS (3)
  1. EYLEA [Suspect]
     Active Substance: AFLIBERCEPT
     Indication: Neovascular age-related macular degeneration
     Dosage: 0.05 ML, ONCE; SOLUTION FOR INJECTION; STRENGTH: 40MG/ML
     Route: 031
     Dates: start: 2020, end: 2020
  2. EYLEA [Suspect]
     Active Substance: AFLIBERCEPT
     Dosage: 0.05 ML, ONCE; SOLUTION FOR INJECTION; STRENGTH: 40MG/ML
     Route: 031
     Dates: start: 202201, end: 202201
  3. EYLEA [Suspect]
     Active Substance: AFLIBERCEPT
     Dosage: 0.05 ML, ONCE; SOLUTION FOR INJECTION; STRENGTH: 40MG/ML
     Route: 031
     Dates: start: 20220210, end: 20220210

REACTIONS (1)
  - Death [Fatal]

NARRATIVE: CASE EVENT DATE: 20220807
